FAERS Safety Report 23972130 (Version 1)
Quarter: 2024Q2

REPORT INFORMATION
  Report Type: Spontaneous
  Country: US (occurrence: None)
  Receive Date: 20240612
  Receipt Date: 20240612
  Transmission Date: 20240716
  Serious: No
  Sender: FDA-Public Use
  Company Number: None

PATIENT
  Age: 34 Year
  Weight: 90 kg

DRUGS (1)
  1. DULCOLAX (BISACODYL) [Suspect]
     Active Substance: BISACODYL
     Indication: Colonoscopy
     Dosage: 4 TABLETS DAILY ORAL?
     Route: 048
     Dates: start: 20240612, end: 20240612

REACTIONS (6)
  - Hyperhidrosis [None]
  - Syncope [None]
  - Abdominal pain [None]
  - Nausea [None]
  - Dry mouth [None]
  - Muscle strain [None]

NARRATIVE: CASE EVENT DATE: 20240612
